FAERS Safety Report 10342227 (Version 1)
Quarter: 2014Q3

REPORT INFORMATION
  Report Type: Not Available
  Country: US (occurrence: US)
  Receive Date: 20140725
  Receipt Date: 20140725
  Transmission Date: 20150326
  Serious: No
  Sender: FDA-Public Use
  Company Number: US-LUPIN PHARMACEUTICALS INC.-E2B_00002027

PATIENT
  Age: 3 Year
  Sex: Female
  Weight: 15.89 kg

DRUGS (2)
  1. SUPRAX [Suspect]
     Active Substance: CEFIXIME
     Indication: URINARY TRACT INFECTION
  2. SUPRAX [Suspect]
     Active Substance: CEFIXIME
     Indication: STREPTOCOCCAL INFECTION
     Dates: start: 20140508, end: 20140511

REACTIONS (1)
  - Photosensitivity reaction [Recovered/Resolved]

NARRATIVE: CASE EVENT DATE: 20140511
